FAERS Safety Report 9192357 (Version 1)
Quarter: 2013Q1

REPORT INFORMATION
  Report Type: Report from Study
  Country: CA (occurrence: CA)
  Receive Date: 20130327
  Receipt Date: 20130327
  Transmission Date: 20140127
  Serious: Yes (Hospitalization)
  Sender: FDA-Public Use
  Company Number: CA-JNJFOC-20130312025

PATIENT
  Sex: Female
  Weight: 100 kg

DRUGS (15)
  1. REMICADE [Suspect]
     Indication: ARTHRITIS
     Route: 042
     Dates: start: 20120206
  2. ESOMEPRAZOLE [Concomitant]
     Route: 065
  3. CIPRALEX [Concomitant]
     Route: 065
  4. CLONAZEPAM [Concomitant]
     Route: 065
  5. VITAMIN D [Concomitant]
     Route: 065
  6. ELTROXIN [Concomitant]
     Route: 065
  7. ACIDE FOLIQUE [Concomitant]
     Route: 065
  8. VITAMIN B12 [Concomitant]
     Route: 065
  9. LYRICA [Concomitant]
     Route: 065
  10. PRAMIPEXOLE [Concomitant]
     Route: 065
  11. METHOTREXATE [Concomitant]
     Route: 065
  12. LANTUS INSULIN [Concomitant]
     Route: 065
  13. ASA EC [Concomitant]
     Route: 065
  14. HUMALOG [Concomitant]
     Route: 065
  15. HYZAAR DS [Concomitant]
     Dosage: 100/25 MG
     Route: 065

REACTIONS (1)
  - Gastrointestinal disorder [Unknown]
